FAERS Safety Report 10368293 (Version 1)
Quarter: 2014Q3

REPORT INFORMATION
  Report Type: Spontaneous
  Country: US (occurrence: None)
  Receive Date: 20140805
  Receipt Date: 20140805
  Transmission Date: 20150326
  Serious: Yes (Other)
  Sender: FDA-Public Use
  Company Number: SYM-2014-23686

PATIENT
  Sex: Female

DRUGS (4)
  1. XENAZINE [Suspect]
     Active Substance: TETRABENAZINE
     Indication: HUNTINGTON^S DISEASE
     Route: 048
     Dates: start: 20120829
  2. XANAX (ALPRAZOLAM) (ALPRAZOLAM) [Concomitant]
  3. DULCOLAX (BISACODYL) [Concomitant]
     Active Substance: BISACODYL
  4. REQUIP (ROPINIROLE HYDROCHLORIDE) (ROPINIROLE HYDROCHLORIDE) [Concomitant]

REACTIONS (2)
  - Anger [None]
  - Urinary tract infection [None]
